FAERS Safety Report 7745264-1 (Version None)
Quarter: 2011Q3

REPORT INFORMATION
  Report Type: 
  Country: None (occurrence: None)
  Receive Date: 20110913
  Receipt Date: 20110901
  Transmission Date: 20111222
  Serious: Yes (Other)
  Sender: FDA-Public Use
  Company Number: US-JNJFOC-20110903257

PATIENT
  Age: 19 Year
  Sex: Female
  Weight: 73.48 kg

DRUGS (2)
  1. TYLENOL-500 [Suspect]
     Indication: EAR PAIN
     Route: 048
     Dates: start: 20090101
  2. TYLENOL-500 [Suspect]
     Indication: TOOTHACHE
     Route: 048
     Dates: start: 20090101

REACTIONS (3)
  - INCORRECT DOSE ADMINISTERED [None]
  - VOMITING [None]
  - DRUG INEFFECTIVE [None]
